FAERS Safety Report 8236310-X (Version None)
Quarter: 2012Q1

REPORT INFORMATION
  Report Type: 
  Country: None (occurrence: None)
  Receive Date: 20120327
  Receipt Date: 20120319
  Transmission Date: 20120608
  Serious: Yes (Hospitalization, Other)
  Sender: FDA-Public Use
  Company Number: US-BAYER-2011-079453

PATIENT
  Age: 24 Year
  Sex: Female

DRUGS (3)
  1. YASMIN [Suspect]
     Dosage: UNK
     Dates: start: 20010501, end: 20110501
  2. YASMIN [Suspect]
     Dosage: UNK
     Dates: start: 19990101, end: 20100101
  3. DROSPIRENONE AND ETHINYL ESTRADIOL [Suspect]
     Dosage: UNK
     Dates: start: 19990101, end: 20100101

REACTIONS (2)
  - GALLBLADDER DISORDER [None]
  - CHOLECYSTECTOMY [None]
